FAERS Safety Report 8630408 (Version 5)
Quarter: 2013Q2

REPORT INFORMATION
  Report Type: Spontaneous
  Country: US (occurrence: US)
  Receive Date: 20120622
  Receipt Date: 20130516
  Transmission Date: 20140414
  Serious: Yes (Life-Threatening, Hospitalization)
  Sender: FDA-Public Use
  Company Number: US-B.I. PHARMACEUTICALS,INC./RIDGEFIELD-2012-BP-13793BP

PATIENT
  Age: 71 Year
  Sex: Female
  Weight: 68.04 kg

DRUGS (21)
  1. PRADAXA [Suspect]
     Indication: ATRIAL FIBRILLATION
     Dosage: 300 MG
     Route: 048
     Dates: start: 201104, end: 201107
  2. JANUMET [Concomitant]
     Route: 048
  3. VESICARE [Concomitant]
     Route: 048
     Dates: start: 20090320
  4. VESICARE [Concomitant]
     Dosage: 5 MG
     Dates: start: 20110516
  5. XANAX [Concomitant]
     Indication: ANXIETY
     Route: 048
     Dates: start: 20090514
  6. METOPROLOL [Concomitant]
     Dosage: 50 MG
     Route: 048
     Dates: start: 20090514
  7. MULTIVITAMIN [Concomitant]
     Route: 048
     Dates: start: 20090514
  8. OMEPRAZOLE [Concomitant]
     Dosage: 80 MG
     Route: 048
  9. MULTAQ [Concomitant]
     Dosage: 800 MG
     Route: 048
  10. B COMPLEX [Concomitant]
     Route: 048
  11. COLACE [Concomitant]
     Route: 048
  12. CRESTOR [Concomitant]
     Dosage: 10 MG
     Route: 048
  13. TEARS NATURALE [Concomitant]
     Route: 031
  14. VITAMIN D3 [Concomitant]
     Dosage: 1000 U
     Route: 048
  15. ASPIRIN [Concomitant]
     Dosage: 81 MG
     Route: 048
  16. FERROUS SULFATE [Concomitant]
     Dosage: 325 MG
     Route: 048
  17. GABAPENTIN [Concomitant]
     Dosage: 600 MG
     Route: 048
  18. LISINOPRIL [Concomitant]
     Dosage: 2.5 MG
     Route: 048
  19. NICOTINE [Concomitant]
     Route: 061
  20. METFORMIN [Concomitant]
     Indication: TYPE 2 DIABETES MELLITUS
  21. PIOGLITAZONE [Concomitant]
     Indication: TYPE 2 DIABETES MELLITUS

REACTIONS (3)
  - Gastrointestinal haemorrhage [Recovered/Resolved]
  - Iron deficiency anaemia [Unknown]
  - Traumatic haematoma [Unknown]
